FAERS Safety Report 14376553 (Version 2)
Quarter: 2018Q2

REPORT INFORMATION
  Report Type: Spontaneous
  Country: US (occurrence: US)
  Receive Date: 20180111
  Receipt Date: 20180412
  Transmission Date: 20180711
  Serious: Yes (Other)
  Sender: FDA-Public Use
  Company Number: US-PFIZER INC-2018010976

PATIENT
  Age: 56 Year
  Sex: Female
  Weight: 64 kg

DRUGS (1)
  1. DILANTIN [Suspect]
     Active Substance: PHENYTOIN
     Indication: GENERALISED TONIC-CLONIC SEIZURE
     Dosage: 4 DF (PILLS), DAILY (AT 400MG/TAKE 300 DAILY)
     Dates: start: 2004

REACTIONS (2)
  - Anticonvulsant drug level increased [Recovered/Resolved]
  - Petit mal epilepsy [Not Recovered/Not Resolved]
